FAERS Safety Report 19150115 (Version 2)
Quarter: 2021Q2

REPORT INFORMATION
  Report Type: Spontaneous
  Country: FR (occurrence: FR)
  Receive Date: 20210417
  Receipt Date: 20210511
  Transmission Date: 20210717
  Serious: Yes (Hospitalization)
  Sender: FDA-Public Use
  Company Number: NVSC2021FR084148

PATIENT
  Age: 73 Year
  Sex: Male

DRUGS (5)
  1. PIPERACILLINE [Interacting]
     Active Substance: PIPERACILLIN SODIUM
     Indication: LUNG OPACITY
     Dosage: 4 G, QD
     Route: 042
     Dates: start: 20171229, end: 20180108
  2. CIPROFLOXACINE [Suspect]
     Active Substance: CIPROFLOXACIN
     Indication: LUNG OPACITY
     Dosage: 200 MG, QD (200 MG/100 ML)
     Route: 042
     Dates: start: 20171229, end: 20180108
  3. CALCIPARINE [Suspect]
     Active Substance: HEPARIN CALCIUM
     Indication: PULMONARY EMBOLISM
     Dosage: 5000 IU, QD
     Route: 058
     Dates: start: 20180103, end: 20180109
  4. PREVISCAN [FLUINDIONE] [Suspect]
     Active Substance: FLUINDIONE
     Indication: PULMONARY EMBOLISM
     Dosage: 10 MG, QD (LE SOIR)
     Route: 048
     Dates: start: 2011, end: 20180101
  5. TAZOBACTAM [Interacting]
     Active Substance: TAZOBACTAM
     Indication: LUNG OPACITY
     Dosage: 500 MG, QD
     Route: 042
     Dates: start: 20171229, end: 20180108

REACTIONS (4)
  - Accidental overdose [Recovered/Resolved]
  - International normalised ratio increased [Recovered/Resolved]
  - Melaena [Recovered/Resolved]
  - Blood loss anaemia [Recovered/Resolved]

NARRATIVE: CASE EVENT DATE: 20180103
